FAERS Safety Report 10133817 (Version 1)
Quarter: 2014Q2

REPORT INFORMATION
  Report Type: Spontaneous
  Country: US (occurrence: US)
  Receive Date: 20140428
  Receipt Date: 20140428
  Transmission Date: 20141212
  Serious: Yes (Other)
  Sender: FDA-Public Use
  Company Number: US-ASTELLAS-2013US011085

PATIENT
  Age: 49 Year
  Sex: Female

DRUGS (1)
  1. LEXISCAN [Suspect]
     Indication: CHEST PAIN
     Route: 042
     Dates: start: 20131010, end: 20131010

REACTIONS (5)
  - Blood pressure decreased [Recovered/Resolved]
  - Electrocardiogram ST segment depression [Recovered/Resolved]
  - Dizziness [Unknown]
  - Chest pain [Unknown]
  - Headache [Unknown]
